FAERS Safety Report 11666451 (Version 2)
Quarter: 2015Q4

REPORT INFORMATION
  Report Type: Spontaneous
  Country: JP (occurrence: JP)
  Receive Date: 20151027
  Receipt Date: 20151028
  Transmission Date: 20160304
  Serious: Yes (Other)
  Sender: FDA-Public Use
  Company Number: PHJP1997JP000676

PATIENT
  Age: 88 Year
  Sex: Female

DRUGS (4)
  1. SELBEX [Concomitant]
     Active Substance: TEPRENONE
     Indication: GASTROINTESTINAL MUCOSAL DISORDER
     Dosage: 100MG
     Route: 048
     Dates: start: 19970512, end: 19970527
  2. ORAL ANTIDIABETICS [Concomitant]
     Active Substance: UNSPECIFIED INGREDIENT
     Indication: DIABETES MELLITUS
     Dosage: 400MG
     Route: 048
     Dates: start: 19970321, end: 19970527
  3. VOLTAREN [Suspect]
     Active Substance: DICLOFENAC SODIUM
     Indication: OSTEOARTHRITIS
     Dosage: 75MG
     Route: 048
     Dates: start: 19970512, end: 19970527
  4. ZINC OXIDE. [Concomitant]
     Active Substance: ZINC OXIDE
     Indication: CONSTIPATION
     Dosage: 1G
     Route: 048
     Dates: start: 19961202, end: 19970527

REACTIONS (4)
  - Peritonitis [None]
  - Postoperative wound complication [None]
  - Acute abdomen [Not Recovered/Not Resolved]
  - Duodenal ulcer perforation [Not Recovered/Not Resolved]

NARRATIVE: CASE EVENT DATE: 19970527
